FAERS Safety Report 10751841 (Version 1)
Quarter: 2015Q1

REPORT INFORMATION
  Report Type: Spontaneous
  Country: GB (occurrence: GB)
  Receive Date: 20150130
  Receipt Date: 20150130
  Transmission Date: 20150721
  Serious: Yes (Other)
  Sender: FDA-Public Use
  Company Number: GB-PFIZER INC-2015038200

PATIENT
  Age: 38 Year
  Sex: Female
  Weight: 60.77 kg

DRUGS (6)
  1. VITAMIN D [Concomitant]
     Active Substance: CHOLECALCIFEROL
  2. SPATONE [Concomitant]
  3. STARFLOWER OIL ^ROCHE^ [Concomitant]
  4. NAPROXEN. [Concomitant]
     Active Substance: NAPROXEN
  5. PRIMROSE [Concomitant]
  6. FLUCONAZOLE. [Suspect]
     Active Substance: FLUCONAZOLE
     Indication: CANDIDA INFECTION
     Dosage: 200 G, UNK
     Route: 048
     Dates: start: 20150106

REACTIONS (10)
  - Pharyngeal oedema [Recovered/Resolved]
  - Vulval ulceration [Recovered/Resolved]
  - Vulvovaginal erythema [Recovered/Resolved]
  - Genital pain [Recovered/Resolved]
  - Oral candidiasis [Recovered/Resolved]
  - Oropharyngeal pain [Recovered/Resolved]
  - Swollen tongue [Recovered/Resolved]
  - Vulvovaginal swelling [Recovered/Resolved]
  - Pruritus genital [Recovered/Resolved]
  - Gingival ulceration [Recovered/Resolved]

NARRATIVE: CASE EVENT DATE: 20150106
